FAERS Safety Report 23213034 (Version 1)
Quarter: 2023Q4

REPORT INFORMATION
  Report Type: Spontaneous
  Country: US (occurrence: US)
  Receive Date: 20231121
  Receipt Date: 20231121
  Transmission Date: 20240110
  Serious: Yes (Other)
  Sender: FDA-Public Use
  Company Number: US-MYLANLABS-2023M1124077

PATIENT
  Age: 64 Year
  Sex: Male

DRUGS (5)
  1. PAMIDRONATE [Suspect]
     Active Substance: PAMIDRONATE DISODIUM
     Indication: Hypercalcaemia of malignancy
     Dosage: 90 MILLIGRAM
     Route: 042
     Dates: start: 20190628
  2. ZOLEDRONIC ACID [Suspect]
     Active Substance: ZOLEDRONIC ACID
     Indication: Hypercalcaemia of malignancy
     Dosage: 4 MILLIGRAM
     Route: 065
     Dates: start: 20190829
  3. ZOLEDRONIC ACID [Suspect]
     Active Substance: ZOLEDRONIC ACID
     Dosage: 4 MILLIGRAM
     Route: 065
     Dates: start: 20200616
  4. ZOLEDRONIC ACID [Suspect]
     Active Substance: ZOLEDRONIC ACID
     Dosage: 4 MILLIGRAM
     Route: 065
     Dates: start: 20200629
  5. PEMBROLIZUMAB [Concomitant]
     Active Substance: PEMBROLIZUMAB
     Indication: Lung squamous cell carcinoma stage III
     Dosage: UNK UNK, CYCLE (RECEIVED A TOTAL OF 3 CYCLES)
     Route: 065
     Dates: start: 20191125, end: 20200106

REACTIONS (1)
  - Drug ineffective [Unknown]
